FAERS Safety Report 8914659 (Version 1)
Quarter: 2012Q4

REPORT INFORMATION
  Report Type: 
  Country: US (occurrence: US)
  Receive Date: 20121119
  Receipt Date: 20121119
  Transmission Date: 20130627
  Serious: Yes (Death, Hospitalization)
  Sender: FDA-Public Use
  Company Number: US-SHIRE-ALL1-2012-05679

PATIENT
  Sex: Male
  Weight: 79.37 kg

DRUGS (2)
  1. FOSRENOL [Suspect]
     Indication: DIABETES MELLITUS
     Dosage: 1000 mg, 3x/day:tid
     Route: 048
     Dates: start: 201004
  2. FOSRENOL [Suspect]
     Indication: HYPERTENSION

REACTIONS (3)
  - Procedural complication [Fatal]
  - Diverticulitis [Unknown]
  - Off label use [Unknown]
